FAERS Safety Report 16745759 (Version 1)
Quarter: 2019Q4

REPORT INFORMATION
  Report Type: Spontaneous
  Country: US (occurrence: US)
  Receive Date: 20190827
  Receipt Date: 20190827
  Transmission Date: 20200122
  Serious: No
  Sender: FDA-Public Use
  Company Number: None

PATIENT
  Age: 58 Year
  Sex: Female

DRUGS (6)
  1. MICARDIS HCT 80-12.5MG [Concomitant]
  2. METFORMIN HCL [Suspect]
     Active Substance: METFORMIN HYDROCHLORIDE
  3. CLINDAMYCIN PH 1% SOLUTION [Concomitant]
  4. ROSUVASTATIN CAL 10MG TAB [Concomitant]
  5. HYDROCOTRISONE 2.5% CREAM [Concomitant]
  6. VICTOZA [Concomitant]
     Active Substance: LIRAGLUTIDE

REACTIONS (3)
  - Product substitution issue [None]
  - Fatigue [None]
  - Drug ineffective [None]
